FAERS Safety Report 7654197-0 (Version None)
Quarter: 2011Q3

REPORT INFORMATION
  Report Type: 
  Country: None (occurrence: None)
  Receive Date: 20110803
  Receipt Date: 20110802
  Transmission Date: 20111222
  Serious: Yes (Death, Life-Threatening, Hospitalization)
  Sender: FDA-Public Use
  Company Number: ES-ABBOTT-11P-144-0733437-00

PATIENT
  Age: 70 Year
  Sex: Male
  Weight: 94 kg

DRUGS (10)
  1. ARANESP [Concomitant]
     Indication: PRODUCT USED FOR UNKNOWN INDICATION
  2. PLAVIX [Concomitant]
     Indication: PRODUCT USED FOR UNKNOWN INDICATION
  3. LANTUS [Concomitant]
     Indication: DIABETES MELLITUS
  4. LAMICTAL [Concomitant]
     Indication: PRODUCT USED FOR UNKNOWN INDICATION
  5. ALLOPURINOL [Concomitant]
     Indication: PRODUCT USED FOR UNKNOWN INDICATION
  6. FERROUS SULFATE TAB [Concomitant]
     Indication: PRODUCT USED FOR UNKNOWN INDICATION
  7. OMEPRAZOLE [Concomitant]
     Indication: PRODUCT USED FOR UNKNOWN INDICATION
  8. RISPERDAL [Concomitant]
     Indication: PRODUCT USED FOR UNKNOWN INDICATION
  9. EMULIQUEN [Concomitant]
     Indication: PRODUCT USED FOR UNKNOWN INDICATION
  10. HUMIRA [Suspect]
     Indication: PSORIASIS
     Route: 058
     Dates: start: 20110425, end: 20110517

REACTIONS (7)
  - GENERALISED OEDEMA [None]
  - HEPATIC FAILURE [None]
  - CANDIDIASIS [None]
  - RENAL FAILURE CHRONIC [None]
  - BACTERIAL SEPSIS [None]
  - METABOLIC ACIDOSIS [None]
  - ENTEROCOCCAL INFECTION [None]
